FAERS Safety Report 5216603-0 (Version None)
Quarter: 2006Q4

REPORT INFORMATION
  Report Type: 
  Country: None (occurrence: None)
  Receive Date: 20061130
  Receipt Date: 20060807
  Transmission Date: 20070319
  Serious: Yes (Hospitalization)
  Sender: FDA-Public Use
  Company Number: US200608002429

PATIENT
  Sex: Male
  Weight: 106.1 kg

DRUGS (1)
  1. ZYPREXA [Suspect]
     Indication: DEPRESSION
     Dosage: 10 MG
     Dates: start: 19980312, end: 20010815

REACTIONS (4)
  - CHEST PAIN [None]
  - DIABETES MELLITUS [None]
  - NERVE INJURY [None]
  - NEUROPATHY [None]
